FAERS Safety Report 20164346 (Version 1)
Quarter: 2021Q4

REPORT INFORMATION
  Report Type: Spontaneous
  Country: DK (occurrence: DK)
  Receive Date: 20211209
  Receipt Date: 20211209
  Transmission Date: 20220303
  Serious: Yes (Life-Threatening, Hospitalization, Other)
  Sender: FDA-Public Use
  Company Number: DK-TEVA-2021-DK-1984995

PATIENT
  Age: 4 Year
  Sex: Female

DRUGS (12)
  1. METHOTREXATE [Suspect]
     Active Substance: METHOTREXATE
     Indication: B precursor type acute leukaemia
     Dosage: ON DAYS 1, 8, 15 AND 29 (INDUCTION PHASE), DAYS 37, 58 AND 79 (CONSOLIDATION-I), DAY 120 (REINDUC...
     Route: 037
  2. METHOTREXATE [Suspect]
     Active Substance: METHOTREXATE
     Dosage: HIGH-DOSE; ON DAYS DAY 36, 57 AND 78 (CONSOLIDATION-I) AND DAYS 141, 197, 253 AND 309 (MAINTENANC...
     Route: 042
  3. PEG/L-ASPARAGINASE [Suspect]
     Active Substance: PEGASPARGASE
     Indication: B precursor type acute leukaemia
     Dosage: DOSE: 1000 IU/M2 ON DAY 30 (INDUCTION PHASE), DAYS 43, 57, 71 AND 85 (CONSOLIDATION-I) AND DAY 12...
     Route: 030
  4. MERCAPTOPURINE [Suspect]
     Active Substance: MERCAPTOPURINE
     Indication: B precursor type acute leukaemia
     Dosage: ON DAYS 36-85 (CONSOLIDATION-I)
     Route: 048
  5. MERCAPTOPURINE [Suspect]
     Active Substance: MERCAPTOPURINE
     Dosage: ON DAYS 134-146 (MAINTENANCE-I)
     Route: 048
  6. LEUCOVORIN [Suspect]
     Active Substance: LEUCOVORIN
     Indication: B precursor type acute leukaemia
     Dosage: ADMINISTERED AT HOURS 42 AND 48, FOLLOWED BY EVERY SIXTH HOUR UNTIL PLASMA METHOTREXATE CONCENTRA...
     Route: 042
  7. THIOGUANINE ANHYDROUS [Suspect]
     Active Substance: THIOGUANINE ANHYDROUS
     Indication: B precursor type acute leukaemia
     Dosage: ON DAYS 113-127 (REINDUCTION AND CONSOLIDATION-II)
     Route: 048
  8. PREDNISOLONE [Concomitant]
     Active Substance: PREDNISOLONE
     Indication: B precursor type acute leukaemia
     Dosage: ON DAYS 1-29 (INDUCTION)
     Route: 048
  9. VINCRISTINE [Concomitant]
     Active Substance: VINCRISTINE
     Indication: B precursor type acute leukaemia
     Dosage: ON DAYS 1, 8, 15, 22 AND 29 (INDUCTION), DAYS 43 AND 64 (CONSOLIDATION-I) AND DAYS 92, 99, 106 AN...
     Route: 042
  10. DOXORUBICIN [Concomitant]
     Active Substance: DOXORUBICIN
     Indication: B precursor type acute leukaemia
     Dosage: ON DAYS 1 AND 22 (INDUCTION)
     Route: 042
  11. DEXAMETHASONE [Concomitant]
     Active Substance: DEXAMETHASONE
     Indication: B precursor type acute leukaemia
     Dosage: DIVIDED INTO THREE DOSES FOR 14 DAYS, SEPARATED BY SEVEN DAYS, ON DAYS 92-99 AND 106-113 (REINDUC...
     Route: 065
  12. CYTARABINE [Concomitant]
     Active Substance: CYTARABINE
     Indication: B precursor type acute leukaemia
     Dosage: ON DAYS 115-118 AND DAYS 122-125 (REINDUCTION AND CONSOLIDATION-II)
     Route: 065

REACTIONS (4)
  - Acute hepatic failure [Recovered/Resolved]
  - Generalised onset non-motor seizure [Recovered/Resolved]
  - Encephalopathy [Recovered/Resolved]
  - Hypoglycaemia [Recovered/Resolved]
